FAERS Safety Report 5167237-8 (Version None)
Quarter: 2006Q4

REPORT INFORMATION
  Report Type: 
  Country: None (occurrence: None)
  Receive Date: 20061130
  Receipt Date: 20061117
  Transmission Date: 20070319
  Serious: Yes (Hospitalization, Other)
  Sender: FDA-Public Use
  Company Number: 2006143157

PATIENT
  Sex: Male

DRUGS (2)
  1. DILANTIN [Suspect]
     Dates: start: 20060101
  2. CLONAZEPAM [Suspect]

REACTIONS (2)
  - ANTICONVULSANT DRUG LEVEL INCREASED [None]
  - OVERDOSE [None]
